FAERS Safety Report 8163322-7 (Version None)
Quarter: 2012Q1

REPORT INFORMATION
  Report Type: 
  Country: None (occurrence: None)
  Receive Date: 20120224
  Receipt Date: 20110311
  Transmission Date: 20120608
  Serious: No
  Sender: FDA-Public Use
  Company Number: US-PFIZER INC-K201100265

PATIENT
  Sex: Female

DRUGS (2)
  1. FLECTOR [Suspect]
     Indication: NECK PAIN
     Dosage: 1 PATCH, BID
     Route: 061
  2. FLECTOR [Suspect]
     Indication: LIGAMENT SPRAIN

REACTIONS (2)
  - PALPITATIONS [None]
  - CHEST PAIN [None]
